FAERS Safety Report 16929012 (Version 2)
Quarter: 2019Q4

REPORT INFORMATION
  Report Type: Report from Study
  Country: CN (occurrence: CN)
  Receive Date: 20191017
  Receipt Date: 20191128
  Transmission Date: 20200122
  Serious: Yes (Hospitalization)
  Sender: FDA-Public Use
  Company Number: CN-VIIV HEALTHCARE LIMITED-CN2019APC185473

PATIENT

DRUGS (12)
  1. TENOFOVIR [Concomitant]
     Active Substance: TENOFOVIR
     Indication: ANTIVIRAL TREATMENT
     Dosage: 0.3 G, QD
     Route: 048
     Dates: start: 20180331, end: 20190628
  2. ROSUVASTATIN CALCIUM TABLET [Concomitant]
     Active Substance: ROSUVASTATIN CALCIUM
     Indication: BLOOD CHOLESTEROL DECREASED
     Dosage: 10 MG, QD
     Route: 048
     Dates: start: 20190311, end: 20190325
  3. ALPROSTADIL INJECTION [Concomitant]
     Dosage: 10 UG, QD
     Route: 042
     Dates: start: 20190311, end: 20190322
  4. ASPIRIN ENTERIC COATED TABLET [Concomitant]
     Indication: ANTIPYRESIS
     Dosage: 100 MG, QD
     Route: 048
     Dates: start: 20190311, end: 20190313
  5. ASPIRIN ENTERIC COATED TABLET [Concomitant]
     Indication: ANALGESIC THERAPY
  6. CLOPIDOGREL SULFATE TABLETS [Concomitant]
     Indication: VASCULAR DISORDER PROPHYLAXIS
     Dosage: 75 MG, QD
     Route: 048
     Dates: start: 20190311, end: 20190313
  7. CINEPAZIDE MALEATE INJECTION [Concomitant]
     Indication: CEREBROVASCULAR DISORDER
     Dosage: 240 MG, QD
     Route: 042
     Dates: start: 20190311, end: 20190325
  8. DOLUTEGRAVIR [Suspect]
     Active Substance: DOLUTEGRAVIR
     Indication: HIV TEST POSITIVE
     Dosage: 1 DF, QD
     Route: 048
  9. ISOSORBIDE MONONITRATE TABLET [Concomitant]
     Indication: ANGINA PECTORIS
     Dosage: 20 MG, BID
     Route: 048
     Dates: start: 20190311, end: 20190325
  10. ISOSORBIDE MONONITRATE TABLET [Concomitant]
     Indication: VASODILATION PROCEDURE
  11. LAMIVUDINE. [Concomitant]
     Active Substance: LAMIVUDINE
     Indication: ANTIVIRAL TREATMENT
     Dosage: 0.3 G, QD
     Route: 048
     Dates: start: 20180321, end: 20190628
  12. CINEPAZIDE MALEATE INJECTION [Concomitant]
     Indication: CARDIOVASCULAR DISORDER

REACTIONS (1)
  - Gastritis [Not Recovered/Not Resolved]

NARRATIVE: CASE EVENT DATE: 201803
